FAERS Safety Report 21856269 (Version 2)
Quarter: 2023Q2

REPORT INFORMATION
  Report Type: Report from Study
  Country: US (occurrence: US)
  Receive Date: 20230112
  Receipt Date: 20230622
  Transmission Date: 20230721
  Serious: Yes (Death, Other)
  Sender: FDA-Public Use
  Company Number: US-ACADIA PHARMACEUTICALS INC.-ACA-2022-PIM-001419

PATIENT
  Sex: Female

DRUGS (17)
  1. NUPLAZID [Suspect]
     Active Substance: PIMAVANSERIN TARTRATE
     Indication: Parkinson^s disease psychosis
     Dosage: 34 MILLIGRAM, QD
     Route: 048
  2. NUPLAZID [Suspect]
     Active Substance: PIMAVANSERIN TARTRATE
     Indication: Hallucination
  3. NUPLAZID [Suspect]
     Active Substance: PIMAVANSERIN TARTRATE
     Indication: Delusion
  4. NUPLAZID [Suspect]
     Active Substance: PIMAVANSERIN TARTRATE
     Indication: Parkinson^s disease
  5. ELIQUIS [Concomitant]
     Active Substance: APIXABAN
  6. DONEPEZIL [Concomitant]
     Active Substance: DONEPEZIL
  7. GABAPENTIN [Concomitant]
     Active Substance: GABAPENTIN
  8. LORATADINE [Concomitant]
     Active Substance: LORATADINE
  9. VITAMIN D3 [Concomitant]
     Active Substance: CHOLECALCIFEROL
  10. CITALOPRAM [Concomitant]
     Active Substance: CITALOPRAM HYDROBROMIDE
  11. QUETIAPINE [Concomitant]
     Active Substance: QUETIAPINE
  12. CALCIUM [Concomitant]
     Active Substance: CALCIUM
  13. MELATONIN [Concomitant]
     Active Substance: MELATONIN
  14. OXYBUTYNIN [Concomitant]
     Active Substance: OXYBUTYNIN
  15. VITAMINS NOS [Concomitant]
     Active Substance: VITAMINS
  16. RYTARY [Concomitant]
     Active Substance: CARBIDOPA\LEVODOPA
  17. COLACE [Concomitant]
     Active Substance: DOCUSATE SODIUM

REACTIONS (2)
  - Death [Fatal]
  - Product dose omission issue [Unknown]
